FAERS Safety Report 5164463-9 (Version None)
Quarter: 2006Q4

REPORT INFORMATION
  Report Type: 
  Country: None (occurrence: None)
  Receive Date: 20061205
  Receipt Date: 20061127
  Transmission Date: 20070319
  Serious: Yes (Hospitalization)
  Sender: FDA-Public Use
  Company Number: JP-ROCHE-472539

PATIENT
  Age: 72 Year
  Sex: Male

DRUGS (4)
  1. HORIZON [Suspect]
     Indication: SEDATION
     Route: 065
  2. PENICILLIN [Concomitant]
     Indication: TETANUS
     Route: 065
  3. ADSORBED TETANUS TOXOID [Concomitant]
     Indication: TETANUS
  4. ANTITETANUS IMMUNOGLOBULIN INJECTION [Concomitant]
     Indication: TETANUS

REACTIONS (2)
  - DEEP VEIN THROMBOSIS [None]
  - PULMONARY EMBOLISM [None]
